FAERS Safety Report 12581306 (Version 3)
Quarter: 2016Q4

REPORT INFORMATION
  Report Type: Report from Study
  Country: US (occurrence: US)
  Receive Date: 20160721
  Receipt Date: 20161012
  Transmission Date: 20170207
  Serious: Yes (Death, Hospitalization)
  Sender: FDA-Public Use
  Company Number: US-ACTELION-A-US2016-139343

PATIENT
  Age: 74 Year
  Sex: Female

DRUGS (1)
  1. OPSUMIT [Suspect]
     Active Substance: MACITENTAN
     Indication: PULMONARY ARTERIAL HYPERTENSION
     Dosage: UNK
     Route: 048
     Dates: start: 20150226, end: 20160707

REACTIONS (13)
  - Arthralgia [Unknown]
  - Pleural effusion [Unknown]
  - Death [Fatal]
  - Fall [Unknown]
  - Atelectasis [Unknown]
  - Joint range of motion decreased [Unknown]
  - Lung infiltration [Unknown]
  - Open reduction of fracture [Unknown]
  - Femur fracture [Unknown]
  - Respiratory failure [Unknown]
  - Lethargy [Unknown]
  - Gait disturbance [Unknown]
  - Hypercapnia [Unknown]

NARRATIVE: CASE EVENT DATE: 20160707
